FAERS Safety Report 19943170 (Version 1)
Quarter: 2021Q4

REPORT INFORMATION
  Report Type: Spontaneous
  Country: US (occurrence: US)
  Receive Date: 20211008
  Receipt Date: 20211008
  Transmission Date: 20220303
  Serious: No
  Sender: FDA-Public Use
  Company Number: None

PATIENT
  Age: 34 Year
  Sex: Female
  Weight: 55.8 kg

DRUGS (4)
  1. DEXTROAMPHET SACCHARAT, AMPHET ASPARTATE, DEXTROAMPHET SULFATE AND AMP [Suspect]
     Active Substance: AMPHETAMINE ASPARTATE\AMPHETAMINE SULFATE\DEXTROAMPHETAMINE SACCHARATE\DEXTROAMPHETAMINE SULFATE
     Indication: Attention deficit hyperactivity disorder
     Dosage: ?          QUANTITY:90 TABLET(S);
     Route: 048
     Dates: start: 20210928, end: 20211008
  2. REPATHA [Concomitant]
     Active Substance: EVOLOCUMAB
  3. VALTREX [Concomitant]
     Active Substance: VALACYCLOVIR HYDROCHLORIDE
  4. CELECOXIB [Concomitant]
     Active Substance: CELECOXIB

REACTIONS (11)
  - Product substitution issue [None]
  - Drug ineffective [None]
  - Anxiety [None]
  - Feeling jittery [None]
  - Condition aggravated [None]
  - Paradoxical drug reaction [None]
  - Product quality issue [None]
  - Disturbance in attention [None]
  - Initial insomnia [None]
  - Sleep disorder [None]
  - Nightmare [None]

NARRATIVE: CASE EVENT DATE: 20210928
